FAERS Safety Report 5797116-4 (Version None)
Quarter: 2008Q3

REPORT INFORMATION
  Report Type: 
  Country: None (occurrence: None)
  Receive Date: 20080701
  Receipt Date: 20080619
  Transmission Date: 20090109
  Serious: Yes (Other)
  Sender: FDA-Public Use
  Company Number: PHHY2008DE11847

PATIENT
  Sex: Female

DRUGS (1)
  1. PROVAS [Suspect]
     Dosage: 160MG

REACTIONS (2)
  - DRY EYE [None]
  - MACULAR DEGENERATION [None]
